FAERS Safety Report 9007079 (Version 1)
Quarter: 2013Q1

REPORT INFORMATION
  Report Type: Spontaneous
  Country: US (occurrence: US)
  Receive Date: 20130110
  Receipt Date: 20130110
  Transmission Date: 20140127
  Serious: Yes (Other)
  Sender: FDA-Public Use
  Company Number: US-JNJFOC-20130103137

PATIENT
  Sex: 0

DRUGS (7)
  1. DORIPENEM [Suspect]
     Indication: FEBRILE NEUTROPENIA
     Route: 042
  2. DORIPENEM [Suspect]
     Indication: OSTEOMYELITIS
     Route: 042
  3. DORIPENEM [Suspect]
     Indication: ABDOMINAL INFECTION
     Route: 042
  4. DORIPENEM [Suspect]
     Indication: SOFT TISSUE INFECTION
     Route: 042
  5. DORIPENEM [Suspect]
     Indication: URINARY TRACT INFECTION
     Route: 042
  6. DORIPENEM [Suspect]
     Indication: SEPSIS
     Route: 042
  7. DORIPENEM [Suspect]
     Indication: PNEUMONIA
     Route: 042

REACTIONS (3)
  - Clostridium difficile colitis [Unknown]
  - Renal failure acute [Unknown]
  - Treatment failure [Unknown]
